FAERS Safety Report 13523011 (Version 4)
Quarter: 2018Q3

REPORT INFORMATION
  Report Type: Spontaneous
  Country: US (occurrence: US)
  Receive Date: 20170508
  Receipt Date: 20180815
  Transmission Date: 20181010
  Serious: No
  Sender: FDA-Public Use
  Company Number: US-VIFOR (INTERNATIONAL) INC.-VIT-2017-00851

PATIENT
  Age: 63 Year
  Sex: Male
  Weight: 95.2 kg

DRUGS (22)
  1. FLOMAX [Concomitant]
     Active Substance: TAMSULOSIN HYDROCHLORIDE
  2. PROCARDIA XL [Concomitant]
     Active Substance: NIFEDIPINE
  3. COLECALCIFEROL [Concomitant]
     Active Substance: CHOLECALCIFEROL
  4. VELTASSA [Suspect]
     Active Substance: PATIROMER
     Dosage: ONE PACKET IN 3 OZ OF WATER
     Route: 048
     Dates: start: 20160805
  5. AMLODIPINE [Concomitant]
     Active Substance: AMLODIPINE BESYLATE
  6. LANTUS [Concomitant]
     Active Substance: INSULIN GLARGINE
  7. MIRAPEX [Concomitant]
     Active Substance: PRAMIPEXOLE DIHYDROCHLORIDE
  8. VICTOZA [Concomitant]
     Active Substance: LIRAGLUTIDE
  9. VELTASSA [Suspect]
     Active Substance: PATIROMER
     Indication: HYPERKALAEMIA
     Dosage: ONE PACKET IN 3 OZ OF WATER
     Route: 048
     Dates: start: 20160815
  10. ALPRAZOLAM. [Concomitant]
     Active Substance: ALPRAZOLAM
  11. LOVAZA [Concomitant]
     Active Substance: OMEGA-3-ACID ETHYL ESTERS
  12. LOSARTAN. [Concomitant]
     Active Substance: LOSARTAN
  13. ZETIA [Concomitant]
     Active Substance: EZETIMIBE
  14. METOPROLOL TARTRATE. [Concomitant]
     Active Substance: METOPROLOL TARTRATE
  15. CRANBERRY TAB [Concomitant]
  16. NORCO [Concomitant]
     Active Substance: ACETAMINOPHEN\HYDROCODONE BITARTRATE
  17. RENALTAB [Concomitant]
  18. VELTASSA [Suspect]
     Active Substance: PATIROMER
     Dosage: ONE PACKET IN 3 OZ OF WATER
     Route: 048
     Dates: start: 20160707
  19. VELTASSA [Suspect]
     Active Substance: PATIROMER
     Route: 048
     Dates: start: 20180508
  20. COENZYME Q10 [Concomitant]
     Active Substance: UBIDECARENONE
  21. DULOXETINE. [Concomitant]
     Active Substance: DULOXETINE
  22. NOVOLOG [Concomitant]
     Active Substance: INSULIN ASPART

REACTIONS (8)
  - Influenza [Not Recovered/Not Resolved]
  - Pyrexia [Not Recovered/Not Resolved]
  - Flatulence [Not Recovered/Not Resolved]
  - Constipation [Unknown]
  - Abdominal pain [Not Recovered/Not Resolved]
  - Dyspepsia [Not Recovered/Not Resolved]
  - Vomiting [Not Recovered/Not Resolved]
  - Diarrhoea [Not Recovered/Not Resolved]

NARRATIVE: CASE EVENT DATE: 201701
